FAERS Safety Report 5725710-5 (Version None)
Quarter: 2008Q2

REPORT INFORMATION
  Report Type: 
  Country: None (occurrence: None)
  Receive Date: 20080429
  Receipt Date: 20080422
  Transmission Date: 20081010
  Serious: Yes (Hospitalization)
  Sender: FDA-Public Use
  Company Number: GXKR2008US00965

PATIENT
  Age: 63 Year
  Sex: Male
  Weight: 97.5 kg

DRUGS (1)
  1. ARISTOSPAN (NGX) (TRIAMCINOLONE HEXACETONIDE) INJECTION [Suspect]
     Indication: OSTEOARTHRITIS
     Dosage: MG, ONCE/SINGLE, INTRA-ARTICULAR
     Route: 014
     Dates: start: 20080416, end: 20080416

REACTIONS (2)
  - ARTERIAL THROMBOSIS [None]
  - PAIN IN EXTREMITY [None]
